FAERS Safety Report 8068231-X (Version None)
Quarter: 2012Q1

REPORT INFORMATION
  Report Type: 
  Country: None (occurrence: None)
  Receive Date: 20120124
  Receipt Date: 20110930
  Transmission Date: 20120608
  Serious: No
  Sender: FDA-Public Use
  Company Number: US-AMGEN-USASP2011050694

PATIENT
  Age: 83 Year
  Sex: Female

DRUGS (7)
  1. VITAMIN A                          /00056001/ [Concomitant]
     Dosage: UNK
  2. RAMIPRIL [Concomitant]
     Dosage: UNK
  3. SYNTHROID [Concomitant]
     Dosage: UNK
  4. ATENOLOL [Concomitant]
     Dosage: UNK
  5. PROLIA [Suspect]
     Indication: PRODUCT USED FOR UNKNOWN INDICATION
     Dosage: 60 MG, Q6MO
     Dates: start: 20110901
  6. CALCIUM [Concomitant]
     Dosage: UNK
  7. ZETIA [Concomitant]
     Dosage: UNK

REACTIONS (5)
  - ARTHRALGIA [None]
  - DRUG INEFFECTIVE [None]
  - BACK PAIN [None]
  - PAIN IN EXTREMITY [None]
  - MALAISE [None]
